FAERS Safety Report 8220362-7 (Version None)
Quarter: 2012Q1

REPORT INFORMATION
  Report Type: 
  Country: None (occurrence: None)
  Receive Date: 20120320
  Receipt Date: 20110311
  Transmission Date: 20120608
  Serious: No
  Sender: FDA-Public Use
  Company Number: US-GLAXOSMITHKLINE-A0908102A

PATIENT
  Age: 19 Month
  Sex: Female
  Weight: 10.8 kg

DRUGS (1)
  1. VUSION [Suspect]
     Indication: DERMATITIS DIAPER
     Route: 061
     Dates: start: 20110103, end: 20110106

REACTIONS (1)
  - DRUG INEFFECTIVE [None]
